FAERS Safety Report 12423077 (Version 1)
Quarter: 2016Q2

REPORT INFORMATION
  Report Type: Spontaneous
  Country: US (occurrence: None)
  Receive Date: 20160531
  Receipt Date: 20160531
  Transmission Date: 20160815
  Serious: Yes (Other)
  Sender: FDA-Public Use
  Company Number: None

PATIENT
  Age: 35 Year
  Sex: Male
  Weight: 72.58 kg

DRUGS (1)
  1. CIPROFLOXACIN. [Suspect]
     Active Substance: CIPROFLOXACIN
     Indication: APPENDICITIS
     Route: 048
     Dates: start: 20150704, end: 20150715

REACTIONS (8)
  - Hypoaesthesia [None]
  - Speech disorder [None]
  - Chest pain [None]
  - Arthralgia [None]
  - Myalgia [None]
  - Cardiac disorder [None]
  - Abasia [None]
  - Mucous stools [None]

NARRATIVE: CASE EVENT DATE: 20150710
